FAERS Safety Report 6409170-7 (Version None)
Quarter: 2009Q4

REPORT INFORMATION
  Report Type: 
  Country: None (occurrence: None)
  Receive Date: 20091021
  Receipt Date: 20091013
  Transmission Date: 20100525
  Serious: Yes (Other)
  Sender: FDA-Public Use
  Company Number: GXKR2008GB06228

PATIENT
  Age: 62 Year
  Sex: Male

DRUGS (4)
  1. ACETYLSALICYLIC ACID SRT [Suspect]
     Route: 065
  2. ATENOLOL (NGX) [Suspect]
     Route: 065
  3. SIMVASTATIN [Suspect]
     Route: 065
  4. CARBAMAZEPINE [Suspect]
     Route: 065

REACTIONS (1)
  - ATRIAL FLUTTER [None]
